FAERS Safety Report 13446162 (Version 1)
Quarter: 2017Q2

REPORT INFORMATION
  Report Type: Spontaneous
  Country: FR (occurrence: FR)
  Receive Date: 20170417
  Receipt Date: 20170417
  Transmission Date: 20170830
  Serious: Yes (Hospitalization)
  Sender: FDA-Public Use
  Company Number: FR-ROCHE-1920310

PATIENT
  Age: 62 Year
  Sex: Female

DRUGS (2)
  1. LEVOTHYROX [Concomitant]
     Active Substance: LEVOTHYROXINE
  2. ACTILYSE [Suspect]
     Active Substance: ALTEPLASE
     Indication: ISCHAEMIC STROKE
     Route: 042
     Dates: start: 20161219, end: 20161219

REACTIONS (2)
  - Vascular access site haematoma [Recovered/Resolved]
  - Anaemia [Recovered/Resolved]

NARRATIVE: CASE EVENT DATE: 20161220
